FAERS Safety Report 21045761 (Version 3)
Quarter: 2022Q3

REPORT INFORMATION
  Report Type: Report from Study
  Country: None (occurrence: US)
  Receive Date: 20220706
  Receipt Date: 20220907
  Transmission Date: 20221027
  Serious: Yes (Hospitalization)
  Sender: FDA-Public Use
  Company Number: US-Jiangsu Hengrui Medicine Co., Ltd.-2130572

PATIENT
  Age: 5 Year
  Sex: Female
  Weight: 14.2 kg

DRUGS (17)
  1. CYCLOPHOSPHAMIDE [Suspect]
     Active Substance: CYCLOPHOSPHAMIDE
     Indication: Neuroblastoma
     Dates: start: 20220202, end: 20220311
  2. VENETOCLAX [Suspect]
     Active Substance: VENETOCLAX
     Dates: start: 20220131, end: 20220131
  3. TOPOTECAN HYDROCHLORIDE [Suspect]
     Active Substance: TOPOTECAN HYDROCHLORIDE
     Dates: start: 20220202, end: 20220311
  4. RED BLOOD CELL TRANSFUSION [Concomitant]
     Dates: start: 20220213, end: 20220213
  5. PLATELETS [Concomitant]
     Active Substance: HUMAN PLATELET, ALLOGENIC
     Dates: start: 20220214, end: 20220214
  6. FILGRASTIM [Concomitant]
     Active Substance: FILGRASTIM
     Dates: start: 20220213, end: 20220228
  7. ROMIPLOSTIM [Concomitant]
     Active Substance: ROMIPLOSTIM
     Dates: start: 20220304
  8. LEVOTHYROXINE [Concomitant]
     Active Substance: LEVOTHYROXINE
     Dates: start: 20181105
  9. HYDROCORTISONE [Concomitant]
     Active Substance: HYDROCORTISONE
     Dates: start: 20181115
  10. SODIUM CHLORIDE [Concomitant]
     Active Substance: SODIUM CHLORIDE
     Dates: start: 20220202
  11. ONDANSETRON [Concomitant]
     Active Substance: ONDANSETRON
     Dates: start: 20220204
  12. BACTRIM [Concomitant]
     Active Substance: SULFAMETHOXAZOLE\TRIMETHOPRIM
     Route: 048
     Dates: start: 20210913
  13. HEPARIN SODIUM [Concomitant]
     Active Substance: HEPARIN SODIUM
     Route: 041
     Dates: start: 20220112
  14. OXYCODONE. [Concomitant]
     Active Substance: OXYCODONE HYDROCHLORIDE
     Route: 048
     Dates: start: 20220112
  15. IMODIUM [Concomitant]
     Active Substance: LOPERAMIDE HYDROCHLORIDE
     Route: 048
     Dates: start: 20220207
  16. LIDOCAINE [Concomitant]
     Active Substance: LIDOCAINE
     Route: 061
     Dates: start: 20220213
  17. CHOLECALCIFERO [Concomitant]
     Route: 048
     Dates: start: 20220217

REACTIONS (5)
  - Febrile neutropenia [Recovered/Resolved]
  - Platelet count decreased [Not Recovered/Not Resolved]
  - Anaemia [Not Recovered/Not Resolved]
  - Rhinovirus infection [Not Recovered/Not Resolved]
  - Epistaxis [Recovered/Resolved]

NARRATIVE: CASE EVENT DATE: 20220213
